FAERS Safety Report 4782598-7 (Version None)
Quarter: 2005Q3

REPORT INFORMATION
  Report Type: 
  Country: None (occurrence: None)
  Receive Date: 20050929
  Receipt Date: 20050419
  Transmission Date: 20060218
  Serious: No
  Sender: FDA-Public Use
  Company Number: 402894

PATIENT
  Age: 83 Year
  Sex: Female

DRUGS (2)
  1. COREG [Suspect]
     Route: 048
     Dates: start: 20050101
  2. NORVASC [Concomitant]

REACTIONS (1)
  - OEDEMA PERIPHERAL [None]
